FAERS Safety Report 10072277 (Version 1)
Quarter: 2014Q2

REPORT INFORMATION
  Report Type: Spontaneous
  Country: GB (occurrence: GB)
  Receive Date: 20140411
  Receipt Date: 20140411
  Transmission Date: 20141212
  Serious: Yes (Disabling)
  Sender: FDA-Public Use
  Company Number: GB-ACCORD-022937

PATIENT
  Age: 81 Year
  Sex: Male

DRUGS (1)
  1. GEMCITABINE/GEMCITABINE HYDROCHLORIDE [Suspect]
     Indication: PRODUCT USED FOR UNKNOWN INDICATION
     Dosage: 1800 MG, SINGLE DOSE LAST YEAR THEN 8 WEEKLY DOSES OF 1300 MG, 3 WEEKS ON, 1 WEEK OFF; FROM AN UNKNO
     Dates: end: 20140313

REACTIONS (1)
  - Visual acuity reduced [Unknown]
